FAERS Safety Report 16514459 (Version 1)
Quarter: 2019Q3

REPORT INFORMATION
  Report Type: Spontaneous
  Country: CA (occurrence: CA)
  Receive Date: 20190702
  Receipt Date: 20190702
  Transmission Date: 20191004
  Serious: Yes (Other)
  Sender: FDA-Public Use
  Company Number: CA-TEVA-2019-CA-1069192

PATIENT
  Age: 75 Year
  Sex: Female

DRUGS (7)
  1. DEFERASIROX. [Suspect]
     Active Substance: DEFERASIROX
     Indication: MYELODYSPLASTIC SYNDROME
     Dosage: 1080 MILLIGRAM DAILY;
     Route: 048
  2. DEFERASIROX. [Suspect]
     Active Substance: DEFERASIROX
     Dosage: 540 MILLIGRAM DAILY;
     Route: 048
  3. DEFERASIROX. [Suspect]
     Active Substance: DEFERASIROX
     Dosage: 360 MILLIGRAM DAILY;
     Route: 048
  4. POTASSIUM CHLORIDE. [Concomitant]
     Active Substance: POTASSIUM CHLORIDE
     Indication: PRODUCT USED FOR UNKNOWN INDICATION
     Route: 065
  5. BISOPROLOL [Suspect]
     Active Substance: BISOPROLOL
     Indication: PRODUCT USED FOR UNKNOWN INDICATION
     Route: 048
  6. AMMONIUM CHLORIDE/CAFFEINE [Concomitant]
     Indication: PRODUCT USED FOR UNKNOWN INDICATION
     Route: 065
  7. EPOETIN ALFA [Concomitant]
     Active Substance: ERYTHROPOIETIN
     Indication: PRODUCT USED FOR UNKNOWN INDICATION
     Route: 058

REACTIONS (12)
  - Asthenia [Unknown]
  - Blindness transient [Unknown]
  - Headache [Unknown]
  - Haemoglobin decreased [Unknown]
  - Alopecia [Unknown]
  - Blood iron decreased [Unknown]
  - Malaise [Unknown]
  - Nausea [Unknown]
  - Weight decreased [Unknown]
  - Fatigue [Unknown]
  - Feeling abnormal [Unknown]
  - Dizziness [Unknown]
